FAERS Safety Report 5362578-3 (Version None)
Quarter: 2007Q2

REPORT INFORMATION
  Report Type: 
  Country: None (occurrence: None)
  Receive Date: 20070619
  Receipt Date: 20070615
  Transmission Date: 20071010
  Serious: Yes (Hospitalization)
  Sender: FDA-Public Use
  Company Number: US-BOEHRINGER INGELHEIM PHARMACEUTICALS, INC.-2007-BP-07834BP

PATIENT
  Age: 66 Year
  Sex: Male

DRUGS (6)
  1. COMBIVENT [Suspect]
     Indication: ASTHMA
     Route: 055
     Dates: start: 20040101
  2. AMLODIPINE [Concomitant]
  3. METHADONE HCL [Concomitant]
  4. FLEXERIL [Concomitant]
  5. PREDNISONE TAB [Concomitant]
  6. RANITIDINE [Concomitant]

REACTIONS (2)
  - DYSPNOEA [None]
  - SWELLING FACE [None]
